FAERS Safety Report 12343196 (Version 2)
Quarter: 2016Q2

REPORT INFORMATION
  Report Type: Spontaneous
  Country: BR (occurrence: BR)
  Receive Date: 20160506
  Receipt Date: 20160520
  Transmission Date: 20160815
  Serious: Yes (Other)
  Sender: FDA-Public Use
  Company Number: BR-ABBVIE-16P-020-1623190-00

PATIENT
  Sex: Female

DRUGS (7)
  1. SONEBON [Concomitant]
     Indication: ANXIOLYTIC THERAPY
  2. DEPAKENE [Suspect]
     Active Substance: VALPROIC ACID
     Indication: SEIZURE
     Route: 065
  3. TOPIRAMATE. [Concomitant]
     Active Substance: TOPIRAMATE
     Indication: PRODUCT USED FOR UNKNOWN INDICATION
  4. SONEBON [Concomitant]
     Indication: SEIZURE
  5. MELATONIN [Concomitant]
     Active Substance: MELATONIN
     Indication: PRODUCT USED FOR UNKNOWN INDICATION
     Dosage: BEFORE SLEEP
  6. FRISIUM [Concomitant]
     Active Substance: CLOBAZAM
     Indication: ANXIOLYTIC THERAPY
  7. FRISIUM [Concomitant]
     Active Substance: CLOBAZAM
     Indication: PROPHYLAXIS

REACTIONS (1)
  - Drug ineffective [Recovered/Resolved]
